FAERS Safety Report 6535076-9 (Version None)
Quarter: 2010Q1

REPORT INFORMATION
  Report Type: 
  Country: None (occurrence: None)
  Receive Date: 20100113
  Receipt Date: 20100107
  Transmission Date: 20100710
  Serious: Yes (Hospitalization)
  Sender: FDA-Public Use
  Company Number: US-ASTRAZENECA-2007UW08594

PATIENT
  Age: 686 Month
  Sex: Male
  Weight: 83.9 kg

DRUGS (3)
  1. SEROQUEL [Suspect]
     Indication: SLEEP DISORDER
     Route: 048
     Dates: start: 19980101, end: 20070101
  2. SEROQUEL [Suspect]
     Indication: ANXIETY
     Route: 048
     Dates: start: 19980101, end: 20070101
  3. HALDOL [Concomitant]

REACTIONS (4)
  - ANKLE FRACTURE [None]
  - DIABETES MELLITUS [None]
  - FOOT FRACTURE [None]
  - TYPE 2 DIABETES MELLITUS [None]
